FAERS Safety Report 10695546 (Version 3)
Quarter: 2015Q1

REPORT INFORMATION
  Report Type: Report from Study
  Country: CA (occurrence: CA)
  Receive Date: 20150107
  Receipt Date: 20150115
  Transmission Date: 20150721
  Serious: Yes (Hospitalization)
  Sender: FDA-Public Use
  Company Number: CA-SA-2014SA180462

PATIENT
  Age: 33 Year
  Sex: Female

DRUGS (5)
  1. QUESTRAN [Interacting]
     Active Substance: CHOLESTYRAMINE
     Indication: IRRITABLE BOWEL SYNDROME
     Route: 048
     Dates: start: 20141210, end: 20150107
  2. ALERTEC [Concomitant]
     Active Substance: MODAFINIL
     Indication: FATIGUE
     Route: 048
  3. QUESTRAN [Interacting]
     Active Substance: CHOLESTYRAMINE
     Indication: DIARRHOEA
     Route: 048
     Dates: start: 20141210, end: 20150107
  4. LYRICA [Concomitant]
     Active Substance: PREGABALIN
     Indication: PAIN
     Route: 048
  5. AUBAGIO [Suspect]
     Active Substance: TERIFLUNOMIDE
     Indication: RELAPSING-REMITTING MULTIPLE SCLEROSIS
     Route: 048
     Dates: start: 20140130, end: 20150107

REACTIONS (9)
  - Diplopia [Not Recovered/Not Resolved]
  - Alopecia [Not Recovered/Not Resolved]
  - Drug ineffective [Unknown]
  - Neuropathy peripheral [Not Recovered/Not Resolved]
  - Nuclear magnetic resonance imaging abnormal [Not Recovered/Not Resolved]
  - Optic neuritis [Not Recovered/Not Resolved]
  - Drug interaction [Unknown]
  - Multiple sclerosis relapse [Not Recovered/Not Resolved]
  - Paraesthesia [Not Recovered/Not Resolved]

NARRATIVE: CASE EVENT DATE: 20141214
